FAERS Safety Report 8341347-6 (Version None)
Quarter: 2012Q2

REPORT INFORMATION
  Report Type: 
  Country: None (occurrence: None)
  Receive Date: 20120507
  Receipt Date: 20120426
  Transmission Date: 20120825
  Serious: Yes (Hospitalization)
  Sender: FDA-Public Use
  Company Number: US-JNJFOC-20120412501

PATIENT
  Sex: Male
  Weight: 28.3 kg

DRUGS (5)
  1. INFLIXIMAB, RECOMBINANT [Suspect]
     Route: 042
     Dates: start: 20120306
  2. INFLIXIMAB, RECOMBINANT [Suspect]
     Indication: INFLAMMATORY BOWEL DISEASE
     Route: 042
     Dates: start: 20111215
  3. METHOTREXATE [Concomitant]
  4. MERCAPTOPURINE [Concomitant]
  5. PREDNISONE [Concomitant]

REACTIONS (1)
  - COLITIS [None]
